FAERS Safety Report 14345425 (Version 1)
Quarter: 2018Q1

REPORT INFORMATION
  Report Type: Report from Study
  Country: CN (occurrence: CN)
  Receive Date: 20180103
  Receipt Date: 20180103
  Transmission Date: 20180509
  Serious: Yes (Other)
  Sender: FDA-Public Use
  Company Number: CN-ROCHE-2045672

PATIENT

DRUGS (3)
  1. PEG-INTERFERON ALFA 2A [Suspect]
     Active Substance: PEGINTERFERON ALFA-2A
     Indication: CHRONIC HEPATITIS C
     Dosage: LOW DOSE 135UG/WEEK?ROUTINE DOSE 180UG/WEEK
     Route: 058
  2. PEGINTERFERON ALFA-2B [Suspect]
     Active Substance: PEGINTERFERON ALFA-2B
     Indication: CHRONIC HEPATITIS C
     Dosage: LOW DOSE 80 OR 50 UG/WEEK?ROUTINE DOSE 100UG/WEEK
     Route: 058
  3. RIBAVIRIN. [Suspect]
     Active Substance: RIBAVIRIN
     Indication: CHRONIC HEPATITIS C
     Dosage: 800-1200MG/DAY
     Route: 048

REACTIONS (5)
  - Thyroid mass [Unknown]
  - Adenoma benign [Unknown]
  - Anti-thyroid antibody positive [Unknown]
  - Thyroid neoplasm [Unknown]
  - Thyroid disorder [Unknown]
